FAERS Safety Report 5832435-4 (Version None)
Quarter: 2008Q3

REPORT INFORMATION
  Report Type: 
  Country: None (occurrence: None)
  Receive Date: 20080730
  Receipt Date: 20080717
  Transmission Date: 20090109
  Serious: Yes (Hospitalization)
  Sender: FDA-Public Use
  Company Number: 1000000194

PATIENT
  Age: 70 Year
  Sex: Male

DRUGS (8)
  1. CITALOPRAM HYDROBROMIDE [Suspect]
     Dosage: 20 MG (20 MG,1 IN 1 D), ORAL
     Route: 048
     Dates: start: 20080101, end: 20080509
  2. ASPIRIN [Concomitant]
  3. RAMIPRIL [Concomitant]
  4. LASIX [Concomitant]
  5. NOCTRAN [Concomitant]
  6. SERETIDE [Concomitant]
  7. PARACETAMOL [Concomitant]
  8. OXYGEN [Concomitant]

REACTIONS (4)
  - ARTHRALGIA [None]
  - STAPHYLOCOCCAL INFECTION [None]
  - SUPERINFECTION [None]
  - VASCULAR PURPURA [None]
